FAERS Safety Report 8241489-X (Version None)
Quarter: 2012Q1

REPORT INFORMATION
  Report Type: 
  Country: None (occurrence: None)
  Receive Date: 20120328
  Receipt Date: 20120320
  Transmission Date: 20120608
  Serious: Yes (Other)
  Sender: FDA-Public Use
  Company Number: FR-ASTRAZENECA-2012SE19292

PATIENT
  Sex: Female

DRUGS (4)
  1. LAMOTRGINE [Concomitant]
     Route: 048
  2. DIAZEPAM [Concomitant]
     Route: 048
  3. QUETIAPINE FUMARATE [Suspect]
     Route: 048
     Dates: start: 20120313, end: 20120315
  4. QUETIAPINE FUMARATE [Suspect]
     Indication: BIPOLAR I DISORDER
     Route: 048
     Dates: start: 20120312, end: 20120312

REACTIONS (4)
  - DIZZINESS [None]
  - FEELING DRUNK [None]
  - CONFUSIONAL STATE [None]
  - SOMNOLENCE [None]
